FAERS Safety Report 5174726-9 (Version None)
Quarter: 2006Q4

REPORT INFORMATION
  Report Type: 
  Country: None (occurrence: None)
  Receive Date: 20061206
  Receipt Date: 20061124
  Transmission Date: 20070319
  Serious: Yes (Hospitalization, Other)
  Sender: FDA-Public Use
  Company Number: 2006143119

PATIENT
  Age: 66 Year
  Sex: Male
  Weight: 73 kg

DRUGS (5)
  1. SUTENT [Suspect]
     Indication: GASTROINTESTINAL STROMAL TUMOUR
     Dosage: 50 MG (50 MG, 1 IN 1 D), ORAL
     Route: 048
     Dates: start: 20051222, end: 20061102
  2. INDAPAMIDE [Concomitant]
  3. PANTOZOL (PANTOPRAZOLE SODIUM) [Concomitant]
  4. IRBESARTAN [Concomitant]
  5. TAVEGYL (CLEMASTINE) [Concomitant]

REACTIONS (3)
  - CARDIAC FAILURE [None]
  - HEPATOTOXICITY [None]
  - PULMONARY HYPERTENSION [None]
